FAERS Safety Report 19918715 (Version 1)
Quarter: 2021Q4

REPORT INFORMATION
  Report Type: Spontaneous
  Country: AU (occurrence: AU)
  Receive Date: 20211005
  Receipt Date: 20211005
  Transmission Date: 20220303
  Serious: Yes (Other)
  Sender: FDA-Public Use
  Company Number: AU-NOVARTISPH-NVSC2021AU222437

PATIENT

DRUGS (3)
  1. CYCLOSPORINE [Suspect]
     Active Substance: CYCLOSPORINE
     Indication: Immune-mediated enterocolitis
     Dosage: UNK
     Route: 065
  2. TACROLIMUS [Suspect]
     Active Substance: TACROLIMUS
     Indication: Immune-mediated enterocolitis
     Dosage: UNK
     Route: 065
  3. SULFAMETHOXAZOLE\TRIMETHOPRIM [Concomitant]
     Active Substance: SULFAMETHOXAZOLE\TRIMETHOPRIM
     Indication: Antifungal prophylaxis
     Dosage: UNK
     Route: 065

REACTIONS (4)
  - Renal impairment [Unknown]
  - Acute kidney injury [Unknown]
  - Toxicity to various agents [Unknown]
  - Product use in unapproved indication [Unknown]
